FAERS Safety Report 25720143 (Version 2)
Quarter: 2025Q3

REPORT INFORMATION
  Report Type: Spontaneous
  Country: US (occurrence: US)
  Receive Date: 20250825
  Receipt Date: 20250826
  Transmission Date: 20251020
  Serious: Yes (Other)
  Sender: AMNEAL
  Company Number: US-AMNEAL PHARMACEUTICALS-2025-AMRX-02031

PATIENT
  Sex: Female
  Weight: 50.794 kg

DRUGS (1)
  1. CREXONT [Suspect]
     Active Substance: CARBIDOPA\LEVODOPA
     Indication: Parkinson^s disease
     Dosage: (52.5/210 MG) 2 CAPSULES, 3 /DAY
     Route: 048
     Dates: start: 20250422

REACTIONS (13)
  - Self-injurious ideation [Unknown]
  - Irritability [Unknown]
  - Fatigue [Unknown]
  - Hyperhidrosis [Unknown]
  - Mood swings [Unknown]
  - Dry mouth [Unknown]
  - Asthenia [Unknown]
  - Negative thoughts [Unknown]
  - Depression [Unknown]
  - Anxiety [Unknown]
  - Dizziness [Unknown]
  - Somnolence [Unknown]
  - Product use issue [Unknown]

NARRATIVE: CASE EVENT DATE: 20250101
